FAERS Safety Report 10246075 (Version 1)
Quarter: 2014Q2

REPORT INFORMATION
  Report Type: Spontaneous
  Country: US (occurrence: None)
  Receive Date: 20140617
  Receipt Date: 20140617
  Transmission Date: 20141212
  Serious: No
  Sender: FDA-Public Use
  Company Number: None

PATIENT
  Age: 33 Year
  Sex: Female
  Weight: 83.92 kg

DRUGS (2)
  1. BRINTELLIX 10 MG [Suspect]
     Indication: DEPRESSION
     Dosage: 1 ONCE DAILY, TAKEN BY MOUTH
     Route: 048
  2. BRINTELLIX 10 MG [Suspect]
     Indication: BIPOLAR DISORDER
     Dosage: 1 ONCE DAILY, TAKEN BY MOUTH
     Route: 048

REACTIONS (1)
  - Pruritus generalised [None]
